FAERS Safety Report 7303044-5 (Version None)
Quarter: 2011Q1

REPORT INFORMATION
  Report Type: 
  Country: None (occurrence: None)
  Receive Date: 20110221
  Receipt Date: 20110211
  Transmission Date: 20110831
  Serious: Yes (Hospitalization)
  Sender: FDA-Public Use
  Company Number: US-BIOGENIDEC-2010BI011150

PATIENT
  Age: 63 Year
  Sex: Female
  Weight: 81 kg

DRUGS (2)
  1. FENTANYL PAIN PUMP [Concomitant]
     Indication: BACK PAIN
  2. AVONEX [Suspect]
     Indication: MULTIPLE SCLEROSIS
     Route: 030
     Dates: start: 20090614

REACTIONS (5)
  - MULTIPLE SCLEROSIS RELAPSE [None]
  - BACK PAIN [None]
  - STRESS [None]
  - INJURY [None]
  - BALANCE DISORDER [None]
